FAERS Safety Report 6329135-3 (Version None)
Quarter: 2009Q3

REPORT INFORMATION
  Report Type: 
  Country: None (occurrence: None)
  Receive Date: 20090824
  Receipt Date: 20090824
  Transmission Date: 20100115
  Serious: Yes (Life-Threatening, Hospitalization)
  Sender: FDA-Public Use
  Company Number: None

PATIENT
  Sex: Female
  Weight: 43.9989 kg

DRUGS (1)
  1. YASMIN [Suspect]
     Indication: DYSMENORRHOEA
     Dosage: 1 PER DAY
     Dates: start: 20071015, end: 20081015

REACTIONS (7)
  - ECONOMIC PROBLEM [None]
  - EMOTIONAL DISTRESS [None]
  - FATIGUE [None]
  - MIGRAINE [None]
  - MOYAMOYA DISEASE [None]
  - PNEUMONIA [None]
  - SKIN DISORDER [None]
